FAERS Safety Report 6685400 (Version 1)
Quarter: 2020Q3

REPORT INFORMATION
  Report Type: Report from Study
  Country: FR (occurrence: FR)
  Receive Date: 20080627
  Receipt Date: 20080627
  Transmission Date: 20201104
  Serious: Yes (Hospitalization)
  Sender: FDA-Public Use
  Company Number: FR-ROCHE-570900

PATIENT
  Age: 58 Year
  Sex: Female
  Weight: 49 kg

DRUGS (7)
  1. IBANDRONIC ACID. [Suspect]
     Active Substance: IBANDRONIC ACID
     Indication: OSTEOPOROSIS POSTMENOPAUSAL
     Route: 048
     Dates: start: 20070223
  2. TRAMADOL. [Concomitant]
     Active Substance: TRAMADOL
     Dates: start: 20070503
  3. NEURONTIN [Concomitant]
     Active Substance: GABAPENTIN
     Dates: start: 20070122
  4. CALCIUM CARBONATE. [Concomitant]
     Active Substance: CALCIUM CARBONATE
     Dates: start: 20070115
  5. CALCIFEDIOL [Concomitant]
     Active Substance: CALCIFEDIOL
     Dates: start: 20070115
  6. AMITRIPTYLINE HYDROCHLORIDE. [Concomitant]
     Active Substance: AMITRIPTYLINE HYDROCHLORIDE
     Dates: start: 20070122
  7. PROPRANOLOL [Concomitant]
     Active Substance: PROPRANOLOL HYDROCHLORIDE
     Dates: start: 20070115

REACTIONS (1)
  - Gastric ulcer perforation [Recovering/Resolving]

NARRATIVE: CASE EVENT DATE: 20080309
